FAERS Safety Report 10342638 (Version 6)
Quarter: 2014Q4

REPORT INFORMATION
  Report Type: Spontaneous
  Country: US (occurrence: US)
  Receive Date: 20140725
  Receipt Date: 20141111
  Transmission Date: 20150528
  Serious: No
  Sender: FDA-Public Use
  Company Number: US-PFIZER INC-2014205848

PATIENT
  Age: 67 Year
  Sex: Female

DRUGS (3)
  1. BYSTOLIC [Concomitant]
     Active Substance: NEBIVOLOL HYDROCHLORIDE
     Dosage: UNK
     Dates: end: 20140725
  2. LIPITOR [Suspect]
     Active Substance: ATORVASTATIN CALCIUM
     Indication: MICROVASCULAR CORONARY ARTERY DISEASE
     Dosage: 40 MG, (QHS)
     Route: 048
     Dates: start: 20140301, end: 20140725
  3. AMLODIPINE [Concomitant]
     Active Substance: AMLODIPINE BESYLATE
     Dosage: 2.5 MG, 1X/DAY
     Dates: end: 20140725

REACTIONS (9)
  - Cough [Recovered/Resolved]
  - Oropharyngeal pain [Unknown]
  - Drug withdrawal syndrome [Recovering/Resolving]
  - Myalgia [Recovered/Resolved]
  - Ischaemia [Unknown]
  - Decreased appetite [Recovered/Resolved]
  - Asthenia [Recovered/Resolved]
  - Headache [Unknown]
  - Arthralgia [Recovered/Resolved]

NARRATIVE: CASE EVENT DATE: 201407
